FAERS Safety Report 24313546 (Version 1)
Quarter: 2024Q3

REPORT INFORMATION
  Report Type: Spontaneous
  Country: FR (occurrence: FR)
  Receive Date: 20240912
  Receipt Date: 20240912
  Transmission Date: 20241017
  Serious: Yes (Death)
  Sender: B BRAUN
  Company Number: FR-B.Braun Medical Inc.-2161507

PATIENT
  Age: 52 Year
  Sex: Female

DRUGS (3)
  1. ACETAMINOPHEN [Suspect]
     Active Substance: ACETAMINOPHEN
  2. MORPHINE [Suspect]
     Active Substance: MORPHINE
  3. CODEINE [Suspect]
     Active Substance: CODEINE

REACTIONS (1)
  - Death [Fatal]
